FAERS Safety Report 7508219-8 (Version None)
Quarter: 2011Q2

REPORT INFORMATION
  Report Type: 
  Country: None (occurrence: None)
  Receive Date: 20110421
  Receipt Date: 20110414
  Transmission Date: 20111010
  Serious: Yes (Other)
  Sender: FDA-Public Use
  Company Number: ALL1-2010-04402

PATIENT
  Age: 65 Year
  Sex: Female
  Weight: 68.9 kg

DRUGS (8)
  1. ATIVAN [Concomitant]
  2. VYVANSE [Suspect]
     Indication: ATTENTION DEFICIT/HYPERACTIVITY DISORDER
     Dosage: SEE IMAGE
     Route: 048
     Dates: start: 20100501, end: 20100601
  3. VYVANSE [Suspect]
     Indication: ATTENTION DEFICIT/HYPERACTIVITY DISORDER
     Dosage: SEE IMAGE
     Route: 048
     Dates: start: 20100801, end: 20100801
  4. VYVANSE [Suspect]
     Indication: ATTENTION DEFICIT/HYPERACTIVITY DISORDER
     Dosage: SEE IMAGE
     Route: 048
     Dates: start: 20100601, end: 20100101
  5. VYVANSE [Suspect]
     Indication: ATTENTION DEFICIT/HYPERACTIVITY DISORDER
     Dosage: SEE IMAGE
     Route: 048
     Dates: start: 20080501, end: 20090601
  6. VYVANSE [Suspect]
     Indication: ATTENTION DEFICIT/HYPERACTIVITY DISORDER
     Dosage: SEE IMAGE
     Route: 048
     Dates: start: 20090601
  7. VYVANSE [Suspect]
     Indication: ATTENTION DEFICIT/HYPERACTIVITY DISORDER
     Dosage: SEE IMAGE
     Route: 048
     Dates: start: 20100801
  8. CELEBREX [Concomitant]

REACTIONS (14)
  - SWELLING FACE [None]
  - DRUG WITHDRAWAL SYNDROME [None]
  - DRY MOUTH [None]
  - CHEST DISCOMFORT [None]
  - DRUG EFFECT INCREASED [None]
  - MUSCLE TWITCHING [None]
  - BLOOD PRESSURE INCREASED [None]
  - BRUXISM [None]
  - INAPPROPRIATE SCHEDULE OF DRUG ADMINISTRATION [None]
  - FACIAL PAIN [None]
  - JOINT STIFFNESS [None]
  - TACHYCARDIA [None]
  - HEADACHE [None]
  - DRUG PRESCRIBING ERROR [None]
